FAERS Safety Report 5276050-2 (Version None)
Quarter: 2007Q1

REPORT INFORMATION
  Report Type: 
  Country: None (occurrence: None)
  Receive Date: 20061213
  Receipt Date: 20050916
  Transmission Date: 20070707
  Serious: No
  Sender: FDA-Public Use
  Company Number: 2005UW13753

PATIENT
  Age: 53 Year
  Sex: Female
  Weight: 74.842 kg

DRUGS (4)
  1. SEROQUEL [Suspect]
     Indication: SCHIZOAFFECTIVE DISORDER
     Dosage: 200 MG TID PO
     Route: 048
  2. CLONAPIN [Concomitant]
  3. REMERON [Concomitant]
  4. EFFEXOR [Concomitant]

REACTIONS (1)
  - TARDIVE DYSKINESIA [None]
